FAERS Safety Report 10686880 (Version 16)
Quarter: 2018Q4

REPORT INFORMATION
  Report Type: Report from Study
  Country: CA (occurrence: CA)
  Receive Date: 20150102
  Receipt Date: 20181122
  Transmission Date: 20190204
  Serious: Yes (Other)
  Sender: FDA-Public Use
  Company Number: CA-ROCHE-1367542

PATIENT
  Age: 52 Year
  Sex: Female
  Weight: 82 kg

DRUGS (6)
  1. ACTEMRA [Suspect]
     Active Substance: TOCILIZUMAB
     Indication: RHEUMATOID ARTHRITIS
     Dosage: BEFORE RPAP ACTEMRA IV DOSING
     Route: 058
  2. ACTEMRA [Suspect]
     Active Substance: TOCILIZUMAB
     Route: 042
     Dates: start: 20130131
  3. ACTEMRA [Suspect]
     Active Substance: TOCILIZUMAB
     Indication: RHEUMATOID ARTHRITIS
     Dosage: (FIRST RPAP DOSE)
     Route: 042
     Dates: start: 20121203
  4. ACTEMRA [Suspect]
     Active Substance: TOCILIZUMAB
     Dosage: FORMULATION: 20 MG/ML?STARTING DOSE WAS 6 MG/KG, NOW AT 8 MG/KG MONTHLY DOSE.
     Route: 042
     Dates: start: 20120412
  5. METHOTREXATE. [Concomitant]
     Active Substance: METHOTREXATE
  6. SALBUTAMOL [Concomitant]
     Active Substance: ALBUTEROL
     Route: 065

REACTIONS (18)
  - Lower limb fracture [Unknown]
  - Blood pressure diastolic decreased [Unknown]
  - Lower respiratory tract infection [Recovering/Resolving]
  - Ligament rupture [Unknown]
  - Breast cancer [Unknown]
  - Lower respiratory tract infection [Not Recovered/Not Resolved]
  - Sinus congestion [Not Recovered/Not Resolved]
  - Pharyngitis streptococcal [Recovered/Resolved]
  - Malaise [Not Recovered/Not Resolved]
  - Bronchitis [Recovering/Resolving]
  - Infusion related reaction [Unknown]
  - Asthma [Not Recovered/Not Resolved]
  - Breast cancer [Unknown]
  - Blood pressure fluctuation [Unknown]
  - Influenza like illness [Unknown]
  - Rheumatoid arthritis [Not Recovered/Not Resolved]
  - Nasopharyngitis [Not Recovered/Not Resolved]
  - Fall [Unknown]

NARRATIVE: CASE EVENT DATE: 20130317
